FAERS Safety Report 7087115-7 (Version None)
Quarter: 2010Q4

REPORT INFORMATION
  Report Type: 
  Country: None (occurrence: None)
  Receive Date: 20101106
  Receipt Date: 20101026
  Transmission Date: 20110411
  Serious: Yes (Other)
  Sender: FDA-Public Use
  Company Number: US-WYE-H18430910

PATIENT
  Age: 50 Year
  Sex: Male

DRUGS (3)
  1. PRISTIQ [Suspect]
     Indication: GENERALISED ANXIETY DISORDER
     Route: 048
     Dates: start: 20100401, end: 20100701
  2. PRISTIQ [Suspect]
     Indication: DEPRESSION
     Route: 048
     Dates: start: 20100701, end: 20101025
  3. PRISTIQ [Suspect]
     Route: 048
     Dates: start: 20101026

REACTIONS (4)
  - BLOOD PRESSURE INCREASED [None]
  - DRUG EFFECT DECREASED [None]
  - LIBIDO DECREASED [None]
  - MYDRIASIS [None]
